FAERS Safety Report 4929793-1 (Version None)
Quarter: 2006Q1

REPORT INFORMATION
  Report Type: 
  Country: None (occurrence: None)
  Receive Date: 20060301
  Receipt Date: 20060103
  Transmission Date: 20060701
  Serious: Yes (Hospitalization, Other)
  Sender: FDA-Public Use
  Company Number: US-MERCK-0601USA00226

PATIENT
  Age: 61 Year
  Sex: Female
  Weight: 88 kg

DRUGS (12)
  1. VIOXX [Suspect]
     Indication: PSORIATIC ARTHROPATHY
     Route: 048
     Dates: start: 20010101, end: 20040930
  2. HYDROCODONE BITARTRATE + ACETAMINOPHEN [Concomitant]
     Route: 065
  3. AMITRIPTYLIN [Concomitant]
     Route: 065
  4. LIPITOR [Concomitant]
     Route: 065
  5. DIOVAN [Concomitant]
     Route: 065
  6. ZYRTEC [Concomitant]
     Route: 065
  7. PREVACID [Concomitant]
     Route: 065
  8. ASPIRIN [Concomitant]
     Route: 065
  9. NEURONTIN [Concomitant]
     Route: 065
  10. ATENOLOL [Concomitant]
     Route: 065
  11. MOBIC [Concomitant]
     Route: 065
  12. ZETIA [Concomitant]
     Route: 065

REACTIONS (10)
  - APHASIA [None]
  - AZOTAEMIA [None]
  - CARDIAC FAILURE CONGESTIVE [None]
  - CEREBROVASCULAR ACCIDENT [None]
  - HYPERLIPIDAEMIA [None]
  - MAJOR DEPRESSION [None]
  - MENTAL STATUS CHANGES [None]
  - MULTIPLE DRUG OVERDOSE [None]
  - MYOCARDIAL INFARCTION [None]
  - RENAL IMPAIRMENT [None]
